FAERS Safety Report 9276137 (Version 2)
Quarter: 2013Q2

REPORT INFORMATION
  Report Type: Spontaneous
  Country: US (occurrence: US)
  Receive Date: 20130507
  Receipt Date: 20130609
  Transmission Date: 20140414
  Serious: Yes (Disabling)
  Sender: FDA-Public Use
  Company Number: US-SANOFI-AVENTIS-2013SA045696

PATIENT
  Age: 49 Year
  Sex: Female
  Weight: 67 kg

DRUGS (6)
  1. LANTUS [Suspect]
     Indication: DIABETES MELLITUS
     Dosage: DOSE:35 UNIT(S)
     Route: 051
     Dates: start: 201301
  2. NAPROXEN SODIUM [Concomitant]
     Indication: PAIN
  3. CELEBREX [Concomitant]
  4. HUMALOG [Concomitant]
     Dosage: DOSE:5 UNIT(S)
  5. LISINOPRIL [Concomitant]
     Indication: BLOOD PRESSURE
  6. HYDROCHLOROTHIAZIDE [Concomitant]

REACTIONS (1)
  - Arthritis [Not Recovered/Not Resolved]
